FAERS Safety Report 14697770 (Version 1)
Quarter: 2018Q1

REPORT INFORMATION
  Report Type: Spontaneous
  Country: US (occurrence: US)
  Receive Date: 20180330
  Receipt Date: 20180330
  Transmission Date: 20180509
  Serious: No
  Sender: FDA-Public Use
  Company Number: US-SA-2018SA009124

PATIENT
  Age: 84 Year
  Sex: Female

DRUGS (3)
  1. ALLEGRA [Suspect]
     Active Substance: FEXOFENADINE HYDROCHLORIDE
     Dosage: FORM: GELCAPS
     Route: 065
     Dates: start: 20180103
  2. OMEPRAZOLE. [Interacting]
     Active Substance: OMEPRAZOLE
     Route: 065
  3. XARELTO [Interacting]
     Active Substance: RIVAROXABAN
     Route: 065

REACTIONS (2)
  - Epistaxis [Unknown]
  - Drug interaction [Unknown]
